FAERS Safety Report 6648302-2 (Version None)
Quarter: 2010Q1

REPORT INFORMATION
  Report Type: 
  Country: None (occurrence: None)
  Receive Date: 20100324
  Receipt Date: 20100319
  Transmission Date: 20100710
  Serious: Yes (Other)
  Sender: FDA-Public Use
  Company Number: MX-BAYER-201012609LA

PATIENT
  Age: 50 Year
  Sex: Male

DRUGS (1)
  1. NEXAVAR [Suspect]
     Indication: HEPATIC NEOPLASM MALIGNANT
     Route: 048
     Dates: start: 20081001, end: 20090315

REACTIONS (3)
  - ENCEPHALOPATHY [None]
  - MUCOSAL INFLAMMATION [None]
  - STOMATITIS [None]
